FAERS Safety Report 13392983 (Version 1)
Quarter: 2017Q1

REPORT INFORMATION
  Report Type: Spontaneous
  Country: CA (occurrence: CA)
  Receive Date: 20170331
  Receipt Date: 20170331
  Transmission Date: 20170429
  Serious: Yes (Hospitalization, Disabling, Other)
  Sender: FDA-Public Use
  Company Number: CA-TEVA-754460ACC

PATIENT
  Age: 43 Year
  Sex: Female

DRUGS (10)
  1. CLONAZEPAM. [Concomitant]
     Active Substance: CLONAZEPAM
  2. CIPROFLOXACIN. [Suspect]
     Active Substance: CIPROFLOXACIN
     Indication: URINARY TRACT INFECTION
     Dosage: 1000 MILLIGRAM DAILY;
     Route: 048
  3. QUETIAPINE. [Concomitant]
     Active Substance: QUETIAPINE
  4. SALBUTAMOL [Concomitant]
     Active Substance: ALBUTEROL
  5. PRAVASTATIN SODIUM. [Concomitant]
     Active Substance: PRAVASTATIN SODIUM
  6. FLOVENT [Concomitant]
     Active Substance: FLUTICASONE PROPIONATE
  7. METHADONE [Concomitant]
     Active Substance: METHADONE HYDROCHLORIDE
  8. BUPROPION. [Concomitant]
     Active Substance: BUPROPION
  9. PALIPERIDONE. [Concomitant]
     Active Substance: PALIPERIDONE
  10. TRAZODONE [Concomitant]
     Active Substance: TRAZODONE HYDROCHLORIDE

REACTIONS (8)
  - Hypoaesthesia [Unknown]
  - Immobile [Unknown]
  - Paraesthesia oral [Unknown]
  - Fall [Unknown]
  - Paraesthesia [Unknown]
  - Pain [Unknown]
  - Abasia [Unknown]
  - Asthenia [Unknown]
